FAERS Safety Report 4797288-4 (Version None)
Quarter: 2005Q4

REPORT INFORMATION
  Report Type: 
  Country: None (occurrence: None)
  Receive Date: 20051013
  Receipt Date: 20050930
  Transmission Date: 20060501
  Serious: Yes (Hospitalization)
  Sender: FDA-Public Use
  Company Number: FR-GLAXOSMITHKLINE-B0395964A

PATIENT
  Age: 39 Year
  Sex: Female
  Weight: 99 kg

DRUGS (7)
  1. AVANDIA [Suspect]
     Indication: DIABETES MELLITUS NON-INSULIN-DEPENDENT
     Dosage: 4MG TWICE PER DAY
     Route: 048
     Dates: end: 20050520
  2. FORTZAAR [Suspect]
     Dosage: 1TAB PER DAY
     Route: 065
     Dates: end: 20050520
  3. GLUCOPHAGE [Suspect]
     Dosage: 1000MG THREE TIMES PER DAY
     Route: 048
     Dates: end: 20050520
  4. DAONIL [Suspect]
     Dosage: 5MG THREE TIMES PER DAY
     Route: 048
     Dates: end: 20050520
  5. INSULIN MIXTARD [Concomitant]
     Route: 065
     Dates: start: 20050521
  6. LOXEN [Concomitant]
     Dosage: 50MG TWICE PER DAY
     Route: 065
     Dates: start: 20050521
  7. ACTRAPID [Concomitant]
     Route: 065
     Dates: start: 20050521

REACTIONS (8)
  - ABORTION INDUCED [None]
  - CYTOMEGALOVIRUS ANTIBODY POSITIVE [None]
  - DIABETIC RETINOPATHY [None]
  - DRUG EXPOSURE DURING PREGNANCY [None]
  - GLYCOSYLATED HAEMOGLOBIN INCREASED [None]
  - PROTEINURIA [None]
  - RUBELLA ANTIBODY POSITIVE [None]
  - TOXOPLASMA SEROLOGY POSITIVE [None]
